FAERS Safety Report 9739141 (Version 1)
Quarter: 2013Q4

REPORT INFORMATION
  Report Type: Report from Study
  Country: GR (occurrence: GR)
  Receive Date: 20131209
  Receipt Date: 20131209
  Transmission Date: 20140711
  Serious: Yes (Death, Other)
  Sender: FDA-Public Use
  Company Number: GR-ASTELLAS-2013US012715

PATIENT
  Age: 59 Year
  Sex: Female

DRUGS (7)
  1. ERLOTINIB TABLET [Suspect]
     Indication: PRODUCT USED FOR UNKNOWN INDICATION
     Dosage: SECOND LINE SYSTEMIC THERAPY
     Route: 065
     Dates: start: 200904, end: 201205
  2. GEMCITABINE /01215702/ [Suspect]
     Indication: METASTASES TO CENTRAL NERVOUS SYSTEM
     Dosage: UNK
     Route: 065
     Dates: start: 200811
  3. OXYCONTIN [Suspect]
     Indication: PAIN
     Dosage: UNK
     Route: 065
     Dates: start: 200904, end: 200909
  4. ZOLEDRONIC ACID [Suspect]
     Indication: PRODUCT USED FOR UNKNOWN INDICATION
     Dosage: UNK
     Route: 065
     Dates: start: 201301
  5. AFATINIB [Suspect]
     Indication: PRODUCT USED FOR UNKNOWN INDICATION
     Dosage: UNK
     Route: 065
     Dates: start: 200102, end: 201309
  6. CARBOPLATIN [Suspect]
     Indication: METASTASES TO CENTRAL NERVOUS SYSTEM
     Dosage: UNK
     Route: 065
     Dates: start: 200811
  7. DOCETAXEL [Suspect]
     Indication: PRODUCT USED FOR UNKNOWN INDICATION
     Dosage: 75 MG/M2, 1 IN 3 WEEKS
     Route: 065
     Dates: start: 201208

REACTIONS (16)
  - Death [Fatal]
  - Myopathy [Unknown]
  - Somnolence [Unknown]
  - Dermatitis acneiform [Unknown]
  - Malignant neoplasm progression [Unknown]
  - Lung cancer metastatic [Unknown]
  - Condition aggravated [Unknown]
  - Metastases to bone [Unknown]
  - Metastases to meninges [Unknown]
  - Nausea [Unknown]
  - Vomiting [Unknown]
  - Diarrhoea [Unknown]
  - Diarrhoea [Unknown]
  - Musculoskeletal chest pain [Unknown]
  - Dyspnoea exertional [Unknown]
  - Cough [Unknown]
